FAERS Safety Report 4874303-0 (Version None)
Quarter: 2006Q1

REPORT INFORMATION
  Report Type: 
  Country: None (occurrence: None)
  Receive Date: 20060106
  Receipt Date: 20050125
  Transmission Date: 20060701
  Serious: Yes (Hospitalization)
  Sender: FDA-Public Use
  Company Number: US-MERCK-0501USA04155

PATIENT
  Age: 79 Year
  Sex: Male
  Weight: 91 kg

DRUGS (1)
  1. VIOXX [Suspect]
     Indication: ARTHRITIS
     Route: 048
     Dates: start: 20000614, end: 20040902

REACTIONS (3)
  - CEREBROVASCULAR ACCIDENT [None]
  - PERIPHERAL ARTERIAL OCCLUSIVE DISEASE [None]
  - TRANSIENT ISCHAEMIC ATTACK [None]
